FAERS Safety Report 20935476 (Version 5)
Quarter: 2025Q2

REPORT INFORMATION
  Report Type: Report from Study
  Country: AU (occurrence: AU)
  Receive Date: 20220609
  Receipt Date: 20250611
  Transmission Date: 20250716
  Serious: Yes (Hospitalization)
  Sender: AMGEN
  Company Number: AU-002147023-NVSC2019AU105890

PATIENT
  Age: 46 Year
  Sex: Male

DRUGS (2)
  1. AIMOVIG [Suspect]
     Active Substance: ERENUMAB-AOOE
     Indication: Migraine with aura
     Dosage: 140 MG, Q4W
     Route: 058
     Dates: start: 20181011
  2. AIMOVIG [Suspect]
     Active Substance: ERENUMAB-AOOE
     Dosage: 70 MG, Q4W
     Route: 058
     Dates: start: 20200320, end: 20250415

REACTIONS (2)
  - Status migrainosus [Not Recovered/Not Resolved]
  - Headache [Not Recovered/Not Resolved]
